FAERS Safety Report 9658896 (Version 2)
Quarter: 2013Q4

REPORT INFORMATION
  Report Type: Spontaneous
  Country: US (occurrence: US)
  Receive Date: 20131030
  Receipt Date: 20131030
  Transmission Date: 20140711
  Serious: Yes (Other)
  Sender: FDA-Public Use
  Company Number: US-TAKEDA-TPA2012A08155

PATIENT
  Sex: 0

DRUGS (2)
  1. ACTOS [Suspect]
     Indication: TYPE 2 DIABETES MELLITUS
     Dosage: 30MG AND 45 MG
     Dates: start: 200804, end: 201110
  2. LANTUS [Concomitant]
     Dates: start: 2004

REACTIONS (3)
  - Pollakiuria [Unknown]
  - Bladder injury [Unknown]
  - Bladder cancer [Not Recovered/Not Resolved]
